FAERS Safety Report 23553399 (Version 2)
Quarter: 2024Q1

REPORT INFORMATION
  Report Type: Report from Study
  Country: US (occurrence: US)
  Receive Date: 20240222
  Receipt Date: 20240227
  Transmission Date: 20240410
  Serious: Yes (Hospitalization)
  Sender: FDA-Public Use
  Company Number: US-BAYER-2024A024746

PATIENT
  Age: 43 Year
  Sex: Female
  Weight: 147.39 kg

DRUGS (11)
  1. ADEMPAS [Suspect]
     Active Substance: RIOCIGUAT
     Indication: Pulmonary arterial hypertension
     Dosage: UNK
     Dates: start: 20240129
  2. ADEMPAS [Suspect]
     Active Substance: RIOCIGUAT
     Indication: Pulmonary arterial hypertension
     Dosage: 1.5 MG, TID
     Route: 048
  3. METFORMIN HYDROCHLORIDE [Concomitant]
     Active Substance: METFORMIN HYDROCHLORIDE
  4. VITAMIN D2 [Concomitant]
     Active Substance: ERGOCALCIFEROL
  5. LASIX [Concomitant]
     Active Substance: FUROSEMIDE
  6. ELIQUIS [Concomitant]
     Active Substance: APIXABAN
  7. ALDACTONE [Concomitant]
     Active Substance: SPIRONOLACTONE
  8. OPSUMIT [Concomitant]
     Active Substance: MACITENTAN
  9. OXYGEN [Concomitant]
     Active Substance: OXYGEN
  10. DIGOXIN [Concomitant]
     Active Substance: DIGOXIN
  11. LOSARTAN POTASSIUM [Concomitant]
     Active Substance: LOSARTAN POTASSIUM

REACTIONS (4)
  - Fluid retention [Not Recovered/Not Resolved]
  - Oedema [None]
  - Oxygen saturation decreased [None]
  - Gait inability [None]

NARRATIVE: CASE EVENT DATE: 20240208
